FAERS Safety Report 21489172 (Version 4)
Quarter: 2022Q4

REPORT INFORMATION
  Report Type: Spontaneous
  Country: CA (occurrence: CA)
  Receive Date: 20221021
  Receipt Date: 20221230
  Transmission Date: 20230113
  Serious: Yes (Hospitalization, Other)
  Sender: FDA-Public Use
  Company Number: CA-CELLTRION INC.-2022CA014046

PATIENT

DRUGS (19)
  1. INFLECTRA [Suspect]
     Active Substance: INFLIXIMAB-DYYB
     Indication: Crohn^s disease
     Dosage: 600 MG, INDUCTION AT Q 0,2,6 THEN EVERY 8 WEEKS
     Route: 042
     Dates: start: 20220512
  2. INFLECTRA [Suspect]
     Active Substance: INFLIXIMAB-DYYB
     Dosage: 600 MG, INDUCTION AT Q 0,2,6 THEN EVERY 8 WEEKS
     Route: 042
     Dates: start: 20220623
  3. INFLECTRA [Suspect]
     Active Substance: INFLIXIMAB-DYYB
     Dosage: 600 MG, INDUCTION AT Q 0,2,6 THEN EVERY 8 WEEKS
     Route: 042
     Dates: start: 20220818
  4. INFLECTRA [Suspect]
     Active Substance: INFLIXIMAB-DYYB
     Dosage: 600 MG, INDUCTION AT Q 0,2,6 THEN EVERY 8 WEEKS
     Route: 042
     Dates: start: 20221012
  5. ASPIRIN [Concomitant]
     Active Substance: ASPIRIN
     Dosage: UNK
  6. ASPIRIN [Concomitant]
     Active Substance: ASPIRIN
     Dosage: 81 MG
  7. CANNABIDIOL\HERBALS [Concomitant]
     Active Substance: CANNABIDIOL\HERBALS
     Indication: Ankylosing spondylitis
     Dosage: UNK
  8. CRESTOR [Concomitant]
     Active Substance: ROSUVASTATIN CALCIUM
     Dosage: UNK
  9. CRESTOR [Concomitant]
     Active Substance: ROSUVASTATIN CALCIUM
     Dosage: 20 MG
     Route: 048
  10. EURO-FER [Concomitant]
     Dosage: UNK
  11. EURO-FER [Concomitant]
     Dosage: 300 MG
  12. MICARDIS [Concomitant]
     Active Substance: TELMISARTAN
     Dosage: UNK
  13. MICARDIS [Concomitant]
     Active Substance: TELMISARTAN
     Dosage: 40 MG
     Route: 048
  14. NAPROXEN [Concomitant]
     Active Substance: NAPROXEN
     Dosage: UNK
  15. NAPROXEN [Concomitant]
     Active Substance: NAPROXEN
     Dosage: 250 MG, 2X/DAY
  16. PANTOPRAZOLE SODIUM [Concomitant]
     Active Substance: PANTOPRAZOLE SODIUM
     Dosage: 40 MG
     Route: 048
  17. VIAGRA [Concomitant]
     Active Substance: SILDENAFIL CITRATE
     Dosage: 1DF, PRN
  18. CYANOCOBALAMIN [Concomitant]
     Active Substance: CYANOCOBALAMIN
     Dosage: UNK
  19. VITAMIN D NOS [Concomitant]
     Active Substance: VITAMIN D NOS
     Dosage: UNK

REACTIONS (9)
  - Cardiac disorder [Recovering/Resolving]
  - Appendicitis perforated [Not Recovered/Not Resolved]
  - Appendiceal abscess [Unknown]
  - Condition aggravated [Not Recovered/Not Resolved]
  - Headache [Unknown]
  - Dyspnoea [Unknown]
  - Arthralgia [Unknown]
  - Abscess [Unknown]
  - Gastrointestinal scarring [Unknown]

NARRATIVE: CASE EVENT DATE: 20220101
